FAERS Safety Report 6919009-9 (Version None)
Quarter: 2010Q3

REPORT INFORMATION
  Report Type: 
  Country: None (occurrence: None)
  Receive Date: 20100811
  Receipt Date: 20100728
  Transmission Date: 20110219
  Serious: Yes (Hospitalization, Disabling, Other)
  Sender: FDA-Public Use
  Company Number: US-ELI_LILLY_AND_COMPANY-US200911006204

PATIENT
  Sex: Male
  Weight: 126.98 kg

DRUGS (6)
  1. ZYPREXA [Suspect]
     Indication: BIPOLAR I DISORDER
     Dosage: 5 MG, EACH EVENING
     Dates: start: 20020225
  2. ZYPREXA [Suspect]
     Dosage: 10 MG, EACH EVENING
     Dates: start: 20020520
  3. ZYPREXA [Suspect]
     Dosage: 20 MG, EACH EVENING
  4. LEXAPRO [Concomitant]
     Dosage: 20 MG, DAILY (1/D)
  5. LEXAPRO [Concomitant]
     Dosage: 10 MG, DAILY (1/D)
  6. DIVALPROEX SODIUM [Concomitant]

REACTIONS (14)
  - ADVERSE EVENT [None]
  - BLOOD CHOLESTEROL INCREASED [None]
  - BLOOD GLUCOSE INCREASED [None]
  - BLOOD PRESSURE INCREASED [None]
  - BLOOD TRIGLYCERIDES INCREASED [None]
  - DEHYDRATION [None]
  - DIABETES MELLITUS [None]
  - ERECTILE DYSFUNCTION [None]
  - HEPATIC STEATOSIS [None]
  - OBESITY [None]
  - PANCREATITIS [None]
  - PANCREATITIS ACUTE [None]
  - SEDATION [None]
  - WEIGHT INCREASED [None]
